FAERS Safety Report 22605471 (Version 1)
Quarter: 2023Q2

REPORT INFORMATION
  Report Type: Spontaneous
  Country: TW (occurrence: TW)
  Receive Date: 20230615
  Receipt Date: 20230615
  Transmission Date: 20230721
  Serious: Yes (Death, Other)
  Sender: FDA-Public Use
  Company Number: TW-AMGEN-TWNSP2023102480

PATIENT

DRUGS (1)
  1. PROLIA [Suspect]
     Active Substance: DENOSUMAB
     Indication: Osteoporosis
     Dosage: 60 MILLIGRAM, Q6MO
     Route: 058

REACTIONS (10)
  - Death [Fatal]
  - Sepsis [Unknown]
  - Tuberculosis [Unknown]
  - Pneumonia [Unknown]
  - Gastrointestinal infection [Unknown]
  - Fungal infection [Unknown]
  - Candida infection [Unknown]
  - Influenza [Unknown]
  - Herpes zoster [Unknown]
  - Urinary tract infection [Unknown]
